FAERS Safety Report 7996161-8 (Version None)
Quarter: 2011Q4

REPORT INFORMATION
  Report Type: 
  Country: None (occurrence: None)
  Receive Date: 20111220
  Receipt Date: 20111215
  Transmission Date: 20120403
  Serious: Yes (Hospitalization, Other)
  Sender: FDA-Public Use
  Company Number: PHHY2010CA81808

PATIENT
  Sex: Female

DRUGS (2)
  1. ZOLEDRONOC ACID [Suspect]
     Indication: OSTEOPOROSIS
     Dosage: 5 MG, ANNUALLY
     Route: 042
     Dates: start: 20091127
  2. ZOLEDRONOC ACID [Suspect]
     Dosage: 5 MG, ANNUALLY
     Route: 042
     Dates: start: 20101214

REACTIONS (3)
  - CHRONIC OBSTRUCTIVE PULMONARY DISEASE [None]
  - TENOSYNOVITIS [None]
  - GENERAL PHYSICAL HEALTH DETERIORATION [None]
